FAERS Safety Report 15324185 (Version 1)
Quarter: 2018Q3

REPORT INFORMATION
  Report Type: Spontaneous
  Country: US (occurrence: US)
  Receive Date: 20180828
  Receipt Date: 20180828
  Transmission Date: 20181010
  Serious: No
  Sender: FDA-Public Use
  Company Number: US-009507513-1808USA000186

PATIENT
  Age: 20 Year
  Sex: Female

DRUGS (2)
  1. KEYTRUDA [Suspect]
     Active Substance: PEMBROLIZUMAB
     Indication: ADENOID CYSTIC CARCINOMA
     Dosage: UNK
  2. REGORAFENIB. [Concomitant]
     Active Substance: REGORAFENIB
     Indication: ADENOID CYSTIC CARCINOMA
     Dosage: UNK

REACTIONS (1)
  - Off label use [Unknown]
